FAERS Safety Report 21497279 (Version 1)
Quarter: 2022Q4

REPORT INFORMATION
  Report Type: Spontaneous
  Country: US (occurrence: US)
  Receive Date: 20221023
  Receipt Date: 20221023
  Transmission Date: 20230112
  Serious: Yes (Other)
  Sender: FDA-Public Use
  Company Number: US-SA-SAC20221019000294

PATIENT
  Age: 69 Year
  Sex: Female

DRUGS (1)
  1. ZANTAC [Suspect]
     Active Substance: RANITIDINE HYDROCHLORIDE
     Indication: Gastric ulcer
     Dosage: 150 MG
     Dates: start: 198501, end: 202001

REACTIONS (2)
  - Breast cancer female [Unknown]
  - Lung carcinoma cell type unspecified stage III [Not Recovered/Not Resolved]

NARRATIVE: CASE EVENT DATE: 20090501
